FAERS Safety Report 7389411-2 (Version None)
Quarter: 2011Q2

REPORT INFORMATION
  Report Type: 
  Country: None (occurrence: None)
  Receive Date: 20110401
  Receipt Date: 20110321
  Transmission Date: 20111010
  Serious: Yes (Other)
  Sender: FDA-Public Use
  Company Number: PHHY2011IT25630

PATIENT
  Sex: Female

DRUGS (1)
  1. AMOXICILLIN AND CLAVULANATE POTASSIUM [Suspect]

REACTIONS (13)
  - EPSTEIN-BARR VIRUS INFECTION [None]
  - HEPATITIS CHOLESTATIC [None]
  - RASH [None]
  - HYPERAEMIA [None]
  - GAMMA-GLUTAMYLTRANSFERASE INCREASED [None]
  - ASPARTATE AMINOTRANSFERASE INCREASED [None]
  - BILIARY DILATATION [None]
  - ALANINE AMINOTRANSFERASE INCREASED [None]
  - HEPATOMEGALY [None]
  - STEVENS-JOHNSON SYNDROME [None]
  - PYREXIA [None]
  - ANGIOEDEMA [None]
  - RASH ERYTHEMATOUS [None]
